FAERS Safety Report 17898798 (Version 1)
Quarter: 2020Q2

REPORT INFORMATION
  Report Type: Spontaneous
  Country: US (occurrence: US)
  Receive Date: 20200616
  Receipt Date: 20200616
  Transmission Date: 20200714
  Serious: Yes (Hospitalization, Other)
  Sender: FDA-Public Use
  Company Number: US-AUROBINDO-AUR-APL-2020-029114

PATIENT
  Age: 30 Year
  Sex: Male

DRUGS (8)
  1. CLOBAZAM. [Suspect]
     Active Substance: CLOBAZAM
     Indication: SEIZURE
     Dosage: UNK
     Route: 065
  2. PENTOBARBITAL. [Suspect]
     Active Substance: PENTOBARBITAL
     Indication: PRODUCT USED FOR UNKNOWN INDICATION
     Dosage: UNK
     Route: 065
  3. PROPOFOL. [Suspect]
     Active Substance: PROPOFOL
     Indication: PRODUCT USED FOR UNKNOWN INDICATION
     Dosage: UNK
     Route: 065
  4. MEXILETINE [Suspect]
     Active Substance: MEXILETINE
     Indication: SEIZURE
     Dosage: UNK
     Route: 065
  5. KETAMINE [Suspect]
     Active Substance: KETAMINE
     Indication: PRODUCT USED FOR UNKNOWN INDICATION
     Dosage: UNK
     Route: 065
  6. OXCARBAZEPINE. [Suspect]
     Active Substance: OXCARBAZEPINE
     Indication: SEIZURE
     Dosage: UNK
     Route: 065
  7. PHENYTOIN. [Interacting]
     Active Substance: PHENYTOIN
     Indication: SEIZURE
     Dosage: UNK
     Route: 065
  8. LIDOCAINE. [Suspect]
     Active Substance: LIDOCAINE
     Indication: SEIZURE
     Dosage: A BOLUS FOLLOWED BY A CONTINUOUS INFUSION
     Route: 042

REACTIONS (2)
  - Drug interaction [Unknown]
  - Drug ineffective [Unknown]
